FAERS Safety Report 16701787 (Version 1)
Quarter: 2019Q3

REPORT INFORMATION
  Report Type: Spontaneous
  Country: FR (occurrence: FR)
  Receive Date: 20190814
  Receipt Date: 20190814
  Transmission Date: 20191004
  Serious: Yes (Life-Threatening)
  Sender: FDA-Public Use
  Company Number: FR-PFIZER INC-2019342565

PATIENT
  Age: 52 Year
  Sex: Female
  Weight: 99 kg

DRUGS (8)
  1. CELOCURINE [SUXAMETHONIUM IODIDE] [Suspect]
     Active Substance: SUCCINYLCHOLINE IODIDE
     Indication: ADJUVANT THERAPY
     Dosage: 100 MG, SINGLE
     Route: 042
     Dates: start: 20190429, end: 20190429
  2. SALBUTAMOL [Concomitant]
     Active Substance: ALBUTEROL
     Dosage: UNK
  3. ATRACURIUM BESILATE [Suspect]
     Active Substance: ATRACURIUM BESYLATE
     Indication: ADJUVANT THERAPY
     Dosage: 40 MG, SINGLE
     Route: 042
     Dates: start: 20190429, end: 20190429
  4. PROPOFOL LIPURO [Suspect]
     Active Substance: PROPOFOL
     Indication: ADJUVANT THERAPY
     Dosage: UNK
     Route: 042
     Dates: start: 20190429
  5. RINGER LACTATE [CALCIUM CHLORIDE DIHYDRATE;POTASSIUM CHLORIDE;SODIUM C [Concomitant]
     Dosage: UNK
  6. SUFENTANIL [SUFENTANIL CITRATE] [Suspect]
     Active Substance: SUFENTANIL CITRATE
     Indication: ADJUVANT THERAPY
     Dosage: UNK
     Route: 042
     Dates: start: 20190429
  7. DEXAMETHASONE. [Concomitant]
     Active Substance: DEXAMETHASONE
     Dosage: UNK
  8. XYLOCAINE WITH ADRENALINE [EPINEPHRINE;LIDOCAINE HYDROCHLORIDE] [Suspect]
     Active Substance: EPINEPHRINE\LIDOCAINE HYDROCHLORIDE
     Indication: ADJUVANT THERAPY
     Dosage: 50 MG, SINGLE
     Route: 042
     Dates: start: 20190429, end: 20190429

REACTIONS (2)
  - Anaphylactic shock [Recovered/Resolved]
  - Peripheral ischaemia [Recovered/Resolved]

NARRATIVE: CASE EVENT DATE: 20190429
